FAERS Safety Report 23885451 (Version 1)
Quarter: 2024Q2

REPORT INFORMATION
  Report Type: Report from Study
  Country: US (occurrence: US)
  Receive Date: 20240522
  Receipt Date: 20240522
  Transmission Date: 20240716
  Serious: Yes (Hospitalization)
  Sender: FDA-Public Use
  Company Number: US-002147023-NVSC2022US235092

PATIENT
  Age: 30 Year
  Sex: Female
  Weight: 80.726 kg

DRUGS (12)
  1. PENICILLIN G [Suspect]
     Active Substance: PENICILLIN G
     Indication: Product used for unknown indication
     Dosage: UNK
     Route: 065
  2. TREPROSTINIL [Suspect]
     Active Substance: TREPROSTINIL
     Dosage: 62.7 NG/KG/ MIN, CONT
     Route: 042
     Dates: start: 20201119
  3. TREPROSTINIL [Suspect]
     Active Substance: TREPROSTINIL
     Dosage: 68.7 NG/KG/ MIN
     Route: 042
     Dates: start: 20201119
  4. TREPROSTINIL [Suspect]
     Active Substance: TREPROSTINIL
     Dosage: 70.7 NG/KG/ MI N
     Route: 042
     Dates: start: 20201119
  5. TREPROSTINIL [Suspect]
     Active Substance: TREPROSTINIL
     Indication: Pulmonary arterial hypertension
     Dosage: UNK (CONTINUE)
     Route: 042
     Dates: start: 20201119
  6. TREPROSTINIL [Suspect]
     Active Substance: TREPROSTINIL
     Dosage: 70 NG/KG/ MI N
     Route: 042
     Dates: start: 20201119
  7. TREPROSTINIL [Suspect]
     Active Substance: TREPROSTINIL
     Dosage: 60.7 NG/KG/ MIN CONT
     Route: 042
     Dates: start: 20201119
  8. AMBRISENTAN [Concomitant]
     Active Substance: AMBRISENTAN
     Dosage: 5 MG
     Route: 065
  9. AMBRISENTAN [Concomitant]
     Active Substance: AMBRISENTAN
     Indication: Product used for unknown indication
     Dosage: 10 MG
     Route: 065
  10. XARELTO [Concomitant]
     Active Substance: RIVAROXABAN
     Indication: Product used for unknown indication
     Dosage: 10 MG
     Route: 065
  11. XARELTO [Concomitant]
     Active Substance: RIVAROXABAN
     Dosage: 10 MG
     Route: 065
  12. XARELTO [Concomitant]
     Active Substance: RIVAROXABAN
     Dosage: 1 UNK
     Route: 065

REACTIONS (12)
  - Hospitalisation [Unknown]
  - Drug hypersensitivity [Unknown]
  - Cough [Unknown]
  - Feeling abnormal [Unknown]
  - Chest pain [Unknown]
  - Dizziness [Unknown]
  - Catheter site discharge [Unknown]
  - Dyspepsia [Unknown]
  - Abdominal discomfort [Unknown]
  - Headache [Unknown]
  - Diarrhoea [Unknown]
  - Illness [Unknown]

NARRATIVE: CASE EVENT DATE: 20240517
